APPROVED DRUG PRODUCT: MOMETASONE FUROATE
Active Ingredient: MOMETASONE FUROATE
Strength: 0.1%
Dosage Form/Route: OINTMENT;TOPICAL
Application: A076067 | Product #001 | TE Code: AB
Applicant: PADAGIS US LLC
Approved: Mar 18, 2002 | RLD: No | RS: Yes | Type: RX